FAERS Safety Report 5116987-8 (Version None)
Quarter: 2006Q3

REPORT INFORMATION
  Report Type: 
  Country: None (occurrence: None)
  Receive Date: 20060928
  Receipt Date: 20060509
  Transmission Date: 20061208
  Serious: Yes (Hospitalization)
  Sender: FDA-Public Use
  Company Number: FR-MERCK-0605FRA00026

PATIENT
  Age: 47 Year
  Sex: Female

DRUGS (3)
  1. COSOPT [Suspect]
     Indication: GLAUCOMA
     Route: 047
     Dates: start: 20060131, end: 20060419
  2. GINKGO AND HEPTAMINOL HYDROCHLORIDE AND TROXERUTIN [Concomitant]
     Route: 048
  3. LATANOPROST [Concomitant]
     Indication: GLAUCOMA
     Route: 047
     Dates: start: 20060420

REACTIONS (4)
  - ENCEPHALITIS [None]
  - HYPOAESTHESIA [None]
  - MULTIPLE SCLEROSIS [None]
  - PARAESTHESIA [None]
